FAERS Safety Report 4797976-X (Version None)
Quarter: 2005Q3

REPORT INFORMATION
  Report Type: 
  Country: None (occurrence: None)
  Receive Date: 20050929
  Receipt Date: 20050830
  Transmission Date: 20060218
  Serious: No
  Sender: FDA-Public Use
  Company Number: 05P-163-0309753

PATIENT
  Age: 76 Year
  Sex: Female
  Weight: 96.6162 kg

DRUGS (6)
  1. HUMIRA [Suspect]
     Indication: RHEUMATOID ARTHRITIS
     Dosage: 40 MG, 1 IN 2 WK, SUBCUTANEOUS;  40 MG, 1 IN 1 M, SUBCUTANEOUS
     Route: 058
     Dates: start: 20040101, end: 20050101
  2. HUMIRA [Suspect]
     Indication: RHEUMATOID ARTHRITIS
     Dosage: 40 MG, 1 IN 2 WK, SUBCUTANEOUS;  40 MG, 1 IN 1 M, SUBCUTANEOUS
     Route: 058
     Dates: start: 20050101
  3. METHOTREXATE [Concomitant]
  4. SULINDAC [Concomitant]
  5. UNSPECIFIED RHEUMATOID ARTHRITIS MEDICATION [Concomitant]
  6. FOLIC ACID [Concomitant]

REACTIONS (2)
  - FEELING ABNORMAL [None]
  - PRURITUS [None]
